FAERS Safety Report 4709258-2 (Version None)
Quarter: 2005Q3

REPORT INFORMATION
  Report Type: 
  Country: None (occurrence: None)
  Receive Date: 20050705
  Receipt Date: 20050623
  Transmission Date: 20060218
  Serious: Yes (Other)
  Sender: FDA-Public Use
  Company Number: 2005091631

PATIENT
  Age: 7 Year
  Sex: Female
  Weight: 20.4119 kg

DRUGS (1)
  1. BENADRYL [Suspect]
     Indication: EAR PRURITUS
     Dosage: 16 TABLETS ONCE, ORAL
     Route: 048
     Dates: start: 20050623, end: 20050623

REACTIONS (1)
  - ABDOMINAL PAIN [None]
